FAERS Safety Report 18099975 (Version 1)
Quarter: 2020Q3

REPORT INFORMATION
  Report Type: Spontaneous
  Country: GB (occurrence: GB)
  Receive Date: 20200731
  Receipt Date: 20200731
  Transmission Date: 20201103
  Serious: Yes (Other)
  Sender: FDA-Public Use
  Company Number: GB-ASCEND THERAPEUTICS US, LLC-2088007

PATIENT
  Age: 60 Year
  Sex: Female
  Weight: 64 kg

DRUGS (5)
  1. ESTROGEL [Suspect]
     Active Substance: ESTRADIOL
  2. ESTRADIOL, NOS ESTRADIOL) [Suspect]
     Active Substance: ESTRADIOL
     Dates: start: 202003
  3. ESTROGEL [Suspect]
     Active Substance: ESTRADIOL
     Indication: HORMONE REPLACEMENT THERAPY
     Route: 061
     Dates: start: 202003
  4. VAGIFEM [Suspect]
     Active Substance: ESTRADIOL
     Route: 054
     Dates: start: 2015
  5. DERMOVATE (CLOBETASOL PROPIONATE), UNKNOWN [Concomitant]
     Route: 065

REACTIONS (3)
  - Rash pruritic [Not Recovered/Not Resolved]
  - Musculoskeletal pain [Not Recovered/Not Resolved]
  - Product prescribing error [Unknown]
